FAERS Safety Report 17675501 (Version 1)
Quarter: 2020Q2

REPORT INFORMATION
  Report Type: Spontaneous
  Country: US (occurrence: US)
  Receive Date: 20200416
  Receipt Date: 20200416
  Transmission Date: 20200714
  Serious: No
  Sender: FDA-Public Use
  Company Number: None

PATIENT
  Age: 72 Year
  Sex: Female
  Weight: 54.45 kg

DRUGS (10)
  1. VITAMIN B12 [Concomitant]
     Active Substance: CYANOCOBALAMIN
  2. SUTENT [Suspect]
     Active Substance: SUNITINIB MALATE
     Indication: GASTROINTESTINAL CARCINOMA
     Route: 048
     Dates: start: 20200214
  3. BENICAR [Concomitant]
     Active Substance: OLMESARTAN MEDOXOMIL
  4. VITAMIN C [Concomitant]
     Active Substance: ASCORBIC ACID
  5. VITAMIN D [Concomitant]
     Active Substance: VITAMIN D NOS
  6. CALTRATE [Concomitant]
     Active Substance: CALCIUM CARBONATE
  7. IMATINIB. [Concomitant]
     Active Substance: IMATINIB MESYLATE
     Dates: start: 20170710, end: 20180531
  8. NIFEDIPINE. [Concomitant]
     Active Substance: NIFEDIPINE
  9. MULTI VITAMIN [Concomitant]
     Active Substance: VITAMINS
  10. SUTENT [Concomitant]
     Active Substance: SUNITINIB MALATE
     Dates: start: 20191010, end: 20200109

REACTIONS (4)
  - Tongue erythema [None]
  - Glossodynia [None]
  - Gingival swelling [None]
  - Oral pain [None]

NARRATIVE: CASE EVENT DATE: 20200416
